FAERS Safety Report 6006007-5 (Version None)
Quarter: 2008Q4

REPORT INFORMATION
  Report Type: 
  Country: None (occurrence: None)
  Receive Date: 20081216
  Receipt Date: 20081216
  Transmission Date: 20090506
  Serious: No
  Sender: FDA-Public Use
  Company Number: None

PATIENT
  Age: 46 Year
  Sex: Male
  Weight: 131.5431 kg

DRUGS (1)
  1. ABILIFY [Suspect]
     Indication: ANXIETY
     Dosage: 2MG DAY PO
     Route: 048
     Dates: start: 20081201, end: 20081213

REACTIONS (4)
  - ABDOMINAL DISTENSION [None]
  - ABDOMINAL PAIN UPPER [None]
  - DIARRHOEA [None]
  - NAUSEA [None]
